FAERS Safety Report 23775649 (Version 1)
Quarter: 2024Q2

REPORT INFORMATION
  Report Type: Spontaneous
  Country: JP (occurrence: JP)
  Receive Date: 20240423
  Receipt Date: 20240423
  Transmission Date: 20240716
  Serious: Yes (Other)
  Sender: FDA-Public Use
  Company Number: JP-NEUROCRINE BIOSCIENCES INC.-2024NBI03934

PATIENT
  Sex: Female

DRUGS (2)
  1. VALBENAZINE [Suspect]
     Active Substance: VALBENAZINE
     Indication: Product used for unknown indication
     Dosage: 40 MILLIGRAM, QD
     Route: 048
  2. CLOZARIL [Concomitant]
     Active Substance: CLOZAPINE

REACTIONS (4)
  - Seizure [Unknown]
  - Dyskinesia [Unknown]
  - Depressed mood [Unknown]
  - Tremor [Unknown]
